FAERS Safety Report 13368437 (Version 1)
Quarter: 2017Q1

REPORT INFORMATION
  Report Type: Spontaneous
  Country: US (occurrence: US)
  Receive Date: 20170324
  Receipt Date: 20170324
  Transmission Date: 20170429
  Serious: Yes (Other)
  Sender: FDA-Public Use
  Company Number: US-PFIZER INC-2017122048

PATIENT
  Age: 33 Year
  Sex: Female
  Weight: 63 kg

DRUGS (12)
  1. GENOTROPIN [Suspect]
     Active Substance: SOMATROPIN
     Indication: HYPOPITUITARISM
     Dosage: 0.2 MG, 1X/DAY
     Route: 058
     Dates: start: 20170307, end: 20170309
  2. ESTRADIOL. [Concomitant]
     Active Substance: ESTRADIOL
     Indication: AMENORRHOEA
     Dosage: 0.75/1.25GM 0.06 PERCENT, 1X/DAY
     Route: 062
  3. NUTROPIN [Concomitant]
     Active Substance: SOMATROPIN
     Indication: HYPOPITUITARISM
     Dosage: 0.3 MG, 1X/DAY
     Route: 058
  4. GENOTROPIN [Suspect]
     Active Substance: SOMATROPIN
     Indication: GROWTH HORMONE DEFICIENCY
  5. ESTRADIOL. [Concomitant]
     Active Substance: ESTRADIOL
     Indication: HYPOPITUITARISM
  6. PROGESTERONE. [Concomitant]
     Active Substance: PROGESTERONE
     Indication: AMENORRHOEA
     Dosage: 50 MG, 1X/DAY
     Route: 067
  7. PROGESTERONE. [Concomitant]
     Active Substance: PROGESTERONE
     Indication: HYPOPITUITARISM
  8. LIOTHYRONINE SODIUM. [Concomitant]
     Active Substance: LIOTHYRONINE SODIUM
     Indication: HYPOTHYROIDISM
     Dosage: 12.5 MG, 3X/DAY
     Route: 048
  9. NUTROPIN [Concomitant]
     Active Substance: SOMATROPIN
     Indication: GROWTH HORMONE DEFICIENCY
     Dosage: 0.2 MG, 1X/DAY
     Route: 058
     Dates: start: 201310, end: 20170301
  10. CHOLESTYRAMINE. [Concomitant]
     Active Substance: CHOLESTYRAMINE
     Indication: BLOOD CHOLESTEROL INCREASED
     Dosage: 4 MG, 2X/DAY
  11. NATURE-THROID [Concomitant]
     Active Substance: THYROID, PORCINE
     Indication: HYPOTHYROIDISM
     Dosage: 2.25 MG, 1X/DAY
     Route: 048
     Dates: start: 2008
  12. LUGOL [Concomitant]
     Active Substance: IODINE\POTASSIUM IODIDE
     Indication: HYPOTHYROIDISM
     Dosage: 4 DF, 1X/DAY
     Route: 048

REACTIONS (3)
  - Hypersensitivity [Recovered/Resolved]
  - Pruritus generalised [Recovered/Resolved]
  - Skin irritation [Recovered/Resolved]

NARRATIVE: CASE EVENT DATE: 20170308
